FAERS Safety Report 7045948-7 (Version None)
Quarter: 2010Q4

REPORT INFORMATION
  Report Type: 
  Country: None (occurrence: None)
  Receive Date: 20101014
  Receipt Date: 20101007
  Transmission Date: 20110411
  Serious: Yes (Other)
  Sender: FDA-Public Use
  Company Number: US-PURDUE-USA-2010-0047319

PATIENT
  Sex: Male

DRUGS (5)
  1. OXYCONTIN [Suspect]
     Indication: BACK PAIN
     Dosage: 40 MG, BID
     Dates: start: 20100915
  2. OXYCONTIN [Suspect]
     Indication: CANCER PAIN
  3. OXYCONTIN [Suspect]
     Indication: BACK PAIN
     Dosage: 80 MG, BID
     Dates: start: 20100915
  4. OXYCONTIN [Suspect]
     Indication: CANCER PAIN
  5. PERCOCET [Concomitant]
     Indication: PRODUCT USED FOR UNKNOWN INDICATION
     Dosage: 4 TABLET, Q3- 4H

REACTIONS (5)
  - DRUG INEFFECTIVE [None]
  - HAEMORRHAGE [None]
  - INADEQUATE ANALGESIA [None]
  - MEDICATION RESIDUE [None]
  - PAIN [None]
